FAERS Safety Report 24567738 (Version 1)
Quarter: 2024Q4

REPORT INFORMATION
  Report Type: Spontaneous
  Country: BR (occurrence: BR)
  Receive Date: 20241031
  Receipt Date: 20241031
  Transmission Date: 20250114
  Serious: Yes (Other)
  Sender: TAKEDA
  Company Number: BR-TAKEDA-2024TUS109482

PATIENT
  Sex: Male
  Weight: 90 kg

DRUGS (1)
  1. ROZEREM [Suspect]
     Active Substance: RAMELTEON
     Indication: Insomnia
     Dosage: UNK
     Route: 048
     Dates: start: 20240920, end: 20241020

REACTIONS (5)
  - Schizoaffective disorder [Unknown]
  - Abdominal pain upper [Unknown]
  - Gastritis [Unknown]
  - Vitamin B12 deficiency [Unknown]
  - Pain [Unknown]
